FAERS Safety Report 7773998-1 (Version None)
Quarter: 2011Q3

REPORT INFORMATION
  Report Type: 
  Country: None (occurrence: None)
  Receive Date: 20110921
  Receipt Date: 20110906
  Transmission Date: 20111222
  Serious: Yes (Other)
  Sender: FDA-Public Use
  Company Number: AUR-APL-2011-04984

PATIENT
  Age: 56 Year
  Sex: Female

DRUGS (1)
  1. PAROXETINE HCL [Suspect]
     Indication: PRODUCT USED FOR UNKNOWN INDICATION

REACTIONS (12)
  - FEELING ABNORMAL [None]
  - INTENTIONAL SELF-INJURY [None]
  - DRUG WITHDRAWAL SYNDROME [None]
  - MALAISE [None]
  - AGITATION [None]
  - PAIN [None]
  - MUSCLE SPASMS [None]
  - DIZZINESS [None]
  - VERTIGO [None]
  - HEADACHE [None]
  - MENTAL DISORDER [None]
  - SUICIDAL IDEATION [None]
